FAERS Safety Report 4578658-6 (Version None)
Quarter: 2005Q1

REPORT INFORMATION
  Report Type: 
  Country: None (occurrence: None)
  Receive Date: 20050211
  Receipt Date: 20041005
  Transmission Date: 20050727
  Serious: Yes (Hospitalization)
  Sender: FDA-Public Use
  Company Number: DE-MERCK-0410DEU00126

PATIENT
  Age: 58 Year
  Sex: Male
  Weight: 85 kg

DRUGS (11)
  1. VIOXX [Suspect]
     Indication: OSTEOARTHRITIS
     Route: 048
     Dates: start: 20010501, end: 20040901
  2. PANTOPRAZOLE SODIUM [Concomitant]
     Indication: GASTRITIS
     Route: 048
     Dates: start: 19990101
  3. ATORVASTATIN CALCIUM [Concomitant]
     Indication: HYPERCHOLESTEROLAEMIA
     Route: 048
     Dates: start: 19990101
  4. PERINDOPRIL ERBUMINE [Concomitant]
     Indication: HYPERTENSION
     Route: 048
     Dates: start: 19990101
  5. SILIBININ [Concomitant]
     Indication: HEPATIC STEATOSIS
     Route: 048
     Dates: start: 19990101
  6. ADEMETIONINE SULFATE TOSYLATE [Concomitant]
     Route: 048
  7. LORMETAZEPAM [Concomitant]
     Indication: SLEEP DISORDER
     Route: 048
     Dates: start: 19990101
  8. TAMSULOSIN HYDROCHLORIDE [Concomitant]
     Indication: PROSTATISM
     Route: 048
     Dates: start: 19990101
  9. AMYLASE AND BROMELAINS AND CHYMOTRYPSIN AND LIPASE AND PANCREATIN AND [Concomitant]
     Route: 048
  10. ASPIRIN [Concomitant]
     Route: 048
  11. SILDENAFIL CITRATE [Concomitant]
     Route: 048
     Dates: start: 19990101

REACTIONS (3)
  - ANGINA PECTORIS [None]
  - CORONARY ARTERY DISEASE [None]
  - DYSPNOEA EXERTIONAL [None]
